FAERS Safety Report 25111028 (Version 1)
Quarter: 2025Q1

REPORT INFORMATION
  Report Type: Report from Study
  Country: US (occurrence: US)
  Receive Date: 20250324
  Receipt Date: 20250324
  Transmission Date: 20250408
  Serious: Yes (Other)
  Sender: ALEXION PHARMACEUTICALS
  Company Number: US-AstraZeneca-CH-00829999A

PATIENT

DRUGS (1)
  1. ACALABRUTINIB [Suspect]
     Active Substance: ACALABRUTINIB
     Indication: Chronic lymphocytic leukaemia
     Dosage: 100 MILLIGRAM, BID

REACTIONS (7)
  - Transient global amnesia [Unknown]
  - Macular degeneration [Unknown]
  - Product dose omission issue [Unknown]
  - Flatulence [Unknown]
  - Micturition urgency [Unknown]
  - Post-traumatic stress disorder [Unknown]
  - Laboratory test abnormal [Unknown]
